FAERS Safety Report 10497225 (Version 1)
Quarter: 2014Q3

REPORT INFORMATION
  Report Type: Spontaneous
  Country: US (occurrence: None)
  Receive Date: 20140815
  Receipt Date: 20140815
  Transmission Date: 20150326
  Serious: Yes (Hospitalization, Other)
  Sender: FDA-Public Use
  Company Number: ADR-2014-00771

PATIENT
  Age: 50 Year
  Sex: Male

DRUGS (4)
  1. FENTANYL (INTRATHECAL) 700 MCG/ML [Suspect]
     Active Substance: FENTANYL
     Indication: PAIN
  2. BACLOFEN INTRATHECAL [Suspect]
     Active Substance: BACLOFEN
     Indication: PAIN
  3. INTRATHECAL ^CAINE^ [Suspect]
     Active Substance: UNSPECIFIED INGREDIENT
  4. ORAL MEDICATION [Suspect]
     Active Substance: UNSPECIFIED INGREDIENT

REACTIONS (4)
  - Drug withdrawal syndrome [None]
  - Overdose [None]
  - Underdose [None]
  - Mental status changes [None]

NARRATIVE: CASE EVENT DATE: 20140429
